FAERS Safety Report 4422424-9 (Version None)
Quarter: 2004Q3

REPORT INFORMATION
  Report Type: 
  Country: None (occurrence: None)
  Receive Date: 20040713
  Receipt Date: 20040202
  Transmission Date: 20050211
  Serious: No
  Sender: FDA-Public Use
  Company Number: PHEH2003US10530

PATIENT
  Age: 75 Year
  Sex: Male

DRUGS (8)
  1. ELIDEL [Suspect]
     Indication: RASH VESICULAR
     Dosage: BID, TOPICAL
     Route: 061
     Dates: start: 20031104, end: 20031126
  2. NORVASC [Concomitant]
  3. LISINOPRIL [Concomitant]
  4. LABETALOL HCL [Concomitant]
  5. TERAZOSIN (TERAZOSIN) [Concomitant]
  6. VIOXX [Concomitant]
  7. ACIPHEX [Concomitant]
  8. PROSCAR [Concomitant]

REACTIONS (2)
  - LICHEN PLANUS [None]
  - RASH PRURITIC [None]
